FAERS Safety Report 5545860-6 (Version None)
Quarter: 2007Q4

REPORT INFORMATION
  Report Type: 
  Country: None (occurrence: None)
  Receive Date: 20071211
  Receipt Date: 20070913
  Transmission Date: 20080405
  Serious: No
  Sender: FDA-Public Use
  Company Number: US-ASTRAZENECA-2007UW21740

PATIENT
  Age: 90 Year
  Sex: Female
  Weight: 65.8 kg

DRUGS (6)
  1. SYMBICORT [Suspect]
     Indication: ASTHMA
     Dosage: 160/4.5 UG 1 PUFF BID
     Route: 055
  2. SYMBICORT [Suspect]
     Indication: EMPHYSEMA
     Dosage: 160/4.5 UG 1 PUFF BID
     Route: 055
  3. NORVASC [Concomitant]
     Route: 048
  4. POTASSIUM CHLORIDE [Concomitant]
     Route: 048
  5. DYAZIDE [Concomitant]
     Route: 048
  6. DUONEB [Concomitant]

REACTIONS (3)
  - INSOMNIA [None]
  - PRURITUS GENERALISED [None]
  - THROAT TIGHTNESS [None]
